FAERS Safety Report 18809161 (Version 1)
Quarter: 2021Q1

REPORT INFORMATION
  Report Type: Spontaneous
  Country: RU (occurrence: RU)
  Receive Date: 20210129
  Receipt Date: 20210129
  Transmission Date: 20210419
  Serious: Yes (Other)
  Sender: FDA-Public Use
  Company Number: RU-009507513-2101RUS012886

PATIENT
  Age: 28 Year
  Sex: Male
  Weight: 89 kg

DRUGS (1)
  1. CUBICIN [Suspect]
     Active Substance: DAPTOMYCIN
     Indication: ENDOCARDITIS BACTERIAL
     Dosage: 500 MILLIGRAM, ONCE
     Route: 041
     Dates: start: 20200818, end: 20200818

REACTIONS (3)
  - Pruritus [Recovered/Resolved]
  - Asphyxia [Recovered/Resolved]
  - Erythema [Recovered/Resolved]

NARRATIVE: CASE EVENT DATE: 20200818
